FAERS Safety Report 15171441 (Version 1)
Quarter: 2018Q3

REPORT INFORMATION
  Report Type: Spontaneous
  Country: HR (occurrence: HR)
  Receive Date: 20180720
  Receipt Date: 20180720
  Transmission Date: 20181010
  Serious: Yes (Other)
  Sender: FDA-Public Use
  Company Number: HR-MYLANLABS-2018M1053540

PATIENT
  Age: 5 Decade
  Sex: Female

DRUGS (7)
  1. CYCLOSPORIN A [Suspect]
     Active Substance: CYCLOSPORINE
     Indication: BEHCET^S SYNDROME
     Dosage: 2 MG/KG, UNK
     Route: 065
  2. PREDNISONE. [Suspect]
     Active Substance: PREDNISONE
     Dosage: SUBSEQUENTLY, ADMINISTERED IN THE DOSE RANGE OF 0.25 TO 0.5 MG/KG AND SUBSEQUENTLY TAPERED OFF
     Route: 048
  3. PREDNISONE. [Suspect]
     Active Substance: PREDNISONE
     Indication: BEHCET^S SYNDROME
     Route: 048
  4. AZATHIOPRINE. [Suspect]
     Active Substance: AZATHIOPRINE
     Indication: BEHCET^S SYNDROME
     Dosage: THE DOSE WAS INCREASED AFTER ONSET OF OCULAR SYMPTOMS OF THE BEHCET^S DISEASE
     Route: 065
  5. PREDNISONE. [Suspect]
     Active Substance: PREDNISONE
     Dosage: TAPERED TO AN UNKNOWN DOSE
     Route: 048
  6. AZATHIOPRINE. [Suspect]
     Active Substance: AZATHIOPRINE
     Route: 065
  7. PREDNISONE. [Suspect]
     Active Substance: PREDNISONE
     Dosage: PULSES OF PREDNISONE WERE ADMINISTERED FOR THREE SUCCESSIVE DAYS FOLLOWING ONSET OF OCULAR SYMPTO...
     Route: 048

REACTIONS (4)
  - Cushing^s syndrome [Unknown]
  - Drug ineffective [Unknown]
  - Depression [Unknown]
  - Cataract [Unknown]
